FAERS Safety Report 6890678-5 (Version None)
Quarter: 2010Q3

REPORT INFORMATION
  Report Type: 
  Country: None (occurrence: None)
  Receive Date: 20100731
  Receipt Date: 20090202
  Transmission Date: 20110219
  Serious: No
  Sender: FDA-Public Use
  Company Number: US-PFIZER INC-2009164078

PATIENT
  Sex: Female
  Weight: 117.91 kg

DRUGS (1)
  1. LIPITOR [Suspect]
     Indication: BLOOD TRIGLYCERIDES INCREASED
     Dosage: UNK
     Dates: end: 20070101

REACTIONS (2)
  - MUSCLE SPASMS [None]
  - MYALGIA [None]
